FAERS Safety Report 8208650-1 (Version None)
Quarter: 2012Q1

REPORT INFORMATION
  Report Type: 
  Country: None (occurrence: None)
  Receive Date: 20120314
  Receipt Date: 20120229
  Transmission Date: 20120608
  Serious: Yes (Other)
  Sender: FDA-Public Use
  Company Number: JP-ROCHE-1029848

PATIENT
  Sex: Male
  Weight: 43 kg

DRUGS (9)
  1. LOXONIN [Concomitant]
     Indication: RHEUMATOID ARTHRITIS
     Route: 048
  2. SOLON [Concomitant]
     Indication: GASTRITIS
     Route: 048
  3. FLUVOXAMINE MALEATE [Concomitant]
     Dosage: DOSAGE IS UNCERTAIN.
     Route: 048
  4. ISONIAZID [Concomitant]
     Indication: ANTIBIOTIC PROPHYLAXIS
     Route: 048
     Dates: start: 20110512
  5. PREDNISOLONE [Concomitant]
     Indication: ASTHMA
     Route: 048
  6. ACTEMRA [Suspect]
     Indication: RHEUMATOID ARTHRITIS
     Route: 041
     Dates: start: 20111012, end: 20111012
  7. ZOLPIDEM [Concomitant]
     Route: 048
  8. ACTEMRA [Suspect]
     Route: 041
     Dates: start: 20111109, end: 20111207
  9. LENDEM [Concomitant]
     Route: 048

REACTIONS (3)
  - GENERALISED OEDEMA [None]
  - DYSPNOEA [None]
  - OLIGURIA [None]
